FAERS Safety Report 21641136 (Version 1)
Quarter: 2022Q4

REPORT INFORMATION
  Report Type: Spontaneous
  Country: GB (occurrence: GB)
  Receive Date: 20221125
  Receipt Date: 20221125
  Transmission Date: 20230113
  Serious: Yes (Disabling, Other)
  Sender: FDA-Public Use
  Company Number: None

PATIENT
  Age: 21 Year
  Sex: Female
  Weight: 71 kg

DRUGS (2)
  1. QUETIAPINE FUMARATE [Suspect]
     Active Substance: QUETIAPINE FUMARATE
     Indication: Bipolar disorder
     Dosage: 400 MILLIGRAM, HS (ONCE A DAY AT NIGHT) TABLET
     Route: 065
     Dates: start: 201806
  2. Mitrazapine [Concomitant]
     Indication: Bipolar disorder
     Dosage: UNK
     Route: 065
     Dates: start: 201710

REACTIONS (19)
  - Arthralgia [Not Recovered/Not Resolved]
  - Blood cholesterol increased [Not Recovered/Not Resolved]
  - Blood prolactin increased [Not Recovered/Not Resolved]
  - Blood follicle stimulating hormone abnormal [Not Recovered/Not Resolved]
  - Blood luteinising hormone abnormal [Not Recovered/Not Resolved]
  - Breast swelling [Not Recovered/Not Resolved]
  - Headache [Not Recovered/Not Resolved]
  - Increased appetite [Not Recovered/Not Resolved]
  - Libido decreased [Not Recovered/Not Resolved]
  - Palpitations [Not Recovered/Not Resolved]
  - Polymenorrhoea [Not Recovered/Not Resolved]
  - Polycystic ovaries [Not Recovered/Not Resolved]
  - Somnolence [Not Recovered/Not Resolved]
  - Somnolence [Not Recovered/Not Resolved]
  - Weight increased [Not Recovered/Not Resolved]
  - Acne cystic [Recovered/Resolved]
  - Fall [Recovered/Resolved]
  - Food craving [Recovered/Resolved]
  - Syncope [Recovered/Resolved]

NARRATIVE: CASE EVENT DATE: 20180601
